FAERS Safety Report 18027897 (Version 1)
Quarter: 2020Q3

REPORT INFORMATION
  Report Type: Spontaneous
  Country: DE (occurrence: DE)
  Receive Date: 20200715
  Receipt Date: 20200715
  Transmission Date: 20201103
  Serious: Yes (Life-Threatening, Hospitalization)
  Sender: FDA-Public Use
  Company Number: DE-ANIPHARMA-2020-DE-000150

PATIENT
  Age: 75 Year
  Sex: Male

DRUGS (14)
  1. RAMIPRIL. [Suspect]
     Active Substance: RAMIPRIL
     Dosage: 5 MG DAILY
     Route: 048
  2. METAMIZOLE [Suspect]
     Active Substance: METAMIZOLE
     Dosage: 500 MG Q6H
     Route: 048
  3. RIVAROXABAN [Concomitant]
     Active Substance: RIVAROXABAN
     Dosage: 15 MG DAILY
     Route: 048
  4. BICALUTAMIDE. [Suspect]
     Active Substance: BICALUTAMIDE
     Indication: PRODUCT USED FOR UNKNOWN INDICATION
     Dosage: 150 MG DAILY
     Route: 048
  5. FEBUXOSTAT. [Concomitant]
     Active Substance: FEBUXOSTAT
     Dosage: 80 MG DAILY
     Route: 048
  6. ACETYLSALICYLSAEURE [Concomitant]
     Active Substance: ASPIRIN
     Dosage: 100 MG DAILY
     Route: 048
  7. SPIRONOLACTONE. [Suspect]
     Active Substance: SPIRONOLACTONE
     Dosage: 50 MG DAILY
     Route: 048
  8. FERRO DUODENAL ^SANOL [Concomitant]
     Dosage: 50 MG DAILY
     Route: 048
  9. FUROSEMIDE. [Suspect]
     Active Substance: FUROSEMIDE
     Dosage: 20 MG DAILY
     Route: 048
  10. NALOXONE+TILIDINE [Concomitant]
     Active Substance: NALOXONE HYDROCHLORIDE\TILIDINE HYDROCHLORIDE
     Dosage: 4/50 MG, 1?0?1?0
     Route: 048
  11. TAMSULOSIN [Concomitant]
     Active Substance: TAMSULOSIN
     Dosage: 4 MG DAILY
     Route: 048
  12. HYDROCHLOROTHIAZIDE+RAMIPRIL [Suspect]
     Active Substance: HYDROCHLOROTHIAZIDE\RAMIPRIL
     Dosage: 25/5 MG, 1 TABLET DAILY
     Route: 048
  13. NOVODIGAL MITE [Concomitant]
     Dosage: 1 MG DAILY
     Route: 048
  14. BISOPROLOL [Suspect]
     Active Substance: BISOPROLOL
     Dosage: 5 MG DAILY
     Route: 048

REACTIONS (9)
  - Labelled drug-drug interaction medication error [Unknown]
  - Product administration error [Unknown]
  - Acute myocardial infarction [Recovered/Resolved with Sequelae]
  - Torsade de pointes [Recovered/Resolved with Sequelae]
  - Off label use [Unknown]
  - Electrolyte imbalance [Unknown]
  - Anaemia [Unknown]
  - Contraindicated product administered [Unknown]
  - Acute kidney injury [Recovered/Resolved with Sequelae]

NARRATIVE: CASE EVENT DATE: 2019
